FAERS Safety Report 9283644 (Version 3)
Quarter: 2013Q3

REPORT INFORMATION
  Report Type: Spontaneous
  Country: US (occurrence: US)
  Receive Date: 20130510
  Receipt Date: 20130703
  Transmission Date: 20140515
  Serious: Yes (Hospitalization)
  Sender: FDA-Public Use
  Company Number: US-GLAXOSMITHKLINE-A0736741A

PATIENT
  Age: 61 Year
  Sex: Male
  Weight: 113.6 kg

DRUGS (5)
  1. AVANDIA [Suspect]
     Indication: TYPE 2 DIABETES MELLITUS
     Dosage: 8MG PER DAY
     Route: 048
     Dates: start: 19991222, end: 2009
  2. GLUCOPHAGE [Concomitant]
     Dates: start: 200002, end: 200004
  3. METFORMIN [Concomitant]
     Dosage: 250MG PER DAY
     Dates: start: 200301
  4. DIABETA [Concomitant]
     Dates: start: 200012, end: 200407
  5. GLUCOTROL XL [Concomitant]
     Dates: start: 199804, end: 199808

REACTIONS (9)
  - Cardiac failure congestive [Not Recovered/Not Resolved]
  - Respiratory distress [Unknown]
  - Anaemia [Unknown]
  - Weight increased [Unknown]
  - Fluid retention [Unknown]
  - Swelling [Unknown]
  - Arrhythmia [Unknown]
  - Left ventricular hypertrophy [Unknown]
  - Cardiomegaly [Unknown]
